FAERS Safety Report 5626100-6 (Version None)
Quarter: 2008Q1

REPORT INFORMATION
  Report Type: 
  Country: None (occurrence: None)
  Receive Date: 20080211
  Receipt Date: 20080128
  Transmission Date: 20080703
  Serious: Yes (Hospitalization)
  Sender: FDA-Public Use
  Company Number: S07-DEN-06438-01

PATIENT
  Age: 35 Year
  Sex: Female

DRUGS (6)
  1. ESCITALOPRAM [Suspect]
     Indication: DEPRESSION
     Dosage: 5 MG QD PO
     Route: 048
     Dates: start: 20070729
  2. ESCITALOPRAM [Suspect]
     Indication: DEPRESSION
     Dosage: 15 MG QD PO
     Route: 048
  3. ZOLPIDEM [Concomitant]
  4. OXAZEPAM [Concomitant]
  5. PANTOPRAZOLE SODIUM [Concomitant]
  6. YASMIN [Concomitant]

REACTIONS (6)
  - DRUG LEVEL DECREASED [None]
  - FEELING ABNORMAL [None]
  - PALPITATIONS [None]
  - RESTLESSNESS [None]
  - STRESS [None]
  - VENOUS BRUIT [None]
